FAERS Safety Report 9493731 (Version 1)
Quarter: 2013Q3

REPORT INFORMATION
  Report Type: Spontaneous
  Country: US (occurrence: US)
  Receive Date: 20130902
  Receipt Date: 20130902
  Transmission Date: 20140515
  Serious: Yes (Hospitalization)
  Sender: FDA-Public Use
  Company Number: US-ROCHE-1268514

PATIENT
  Age: 71 Year
  Sex: Female
  Weight: 62.6 kg

DRUGS (7)
  1. HERCEPTIN [Suspect]
     Indication: BREAST CANCER
     Dosage: LOADING DOSE
     Route: 065
     Dates: start: 201106
  2. HERCEPTIN [Suspect]
     Route: 065
  3. KADCYLA [Suspect]
     Indication: BREAST CANCER METASTATIC
     Dosage: 3.6 MG/KG
     Route: 065
     Dates: start: 20130822
  4. ACETAMINOPHEN [Concomitant]
     Route: 065
  5. ASPIRIN [Concomitant]
     Route: 065
  6. OMEPRAZOLE [Concomitant]
     Route: 048
  7. SIMVASTATIN [Concomitant]
     Route: 048

REACTIONS (7)
  - Dyspnoea [Recovering/Resolving]
  - Acute pulmonary oedema [Recovering/Resolving]
  - Brain natriuretic peptide increased [Unknown]
  - Cardiotoxicity [Recovering/Resolving]
  - Heart valve incompetence [Unknown]
  - Pulmonary hypertension [Unknown]
  - Myocardial infarction [Unknown]
